FAERS Safety Report 13568565 (Version 1)
Quarter: 2017Q2

REPORT INFORMATION
  Report Type: Spontaneous
  Country: US (occurrence: US)
  Receive Date: 20170522
  Receipt Date: 20170522
  Transmission Date: 20170830
  Serious: No
  Sender: FDA-Public Use
  Company Number: US-DRREDDYS-USA/USA/17/0087954

PATIENT
  Age: 15 Year
  Sex: Female
  Weight: 54.4 kg

DRUGS (2)
  1. ZENATANE [Suspect]
     Active Substance: ISOTRETINOIN
     Indication: ACNE
     Route: 048
     Dates: start: 201612
  2. ZENATANE [Suspect]
     Active Substance: ISOTRETINOIN
     Dosage: 40MG AND 10MG
     Route: 048
     Dates: start: 201701

REACTIONS (2)
  - Product quality issue [Unknown]
  - Drug ineffective [Unknown]
